FAERS Safety Report 20483483 (Version 5)
Quarter: 2022Q2

REPORT INFORMATION
  Report Type: Spontaneous
  Country: ES (occurrence: ES)
  Receive Date: 20220217
  Receipt Date: 20220620
  Transmission Date: 20220721
  Serious: Yes (Other)
  Sender: FDA-Public Use
  Company Number: ES-JNJFOC-20220227013

PATIENT
  Age: 49 Year
  Sex: Female

DRUGS (3)
  1. SIMPONI [Suspect]
     Active Substance: GOLIMUMAB
     Indication: Undifferentiated spondyloarthritis
     Route: 058
     Dates: start: 20210621, end: 20211022
  2. HUMIRA [Suspect]
     Active Substance: ADALIMUMAB
     Route: 065
     Dates: start: 202009, end: 202106
  3. METHOTREXATE [Concomitant]
     Active Substance: METHOTREXATE
     Route: 048
     Dates: start: 20210621, end: 20211022

REACTIONS (2)
  - Myelitis [Recovering/Resolving]
  - Myelitis transverse [Recovering/Resolving]

NARRATIVE: CASE EVENT DATE: 20210914
